FAERS Safety Report 10187313 (Version 1)
Quarter: 2014Q2

REPORT INFORMATION
  Report Type: Spontaneous
  Country: US (occurrence: US)
  Receive Date: 20140522
  Receipt Date: 20140522
  Transmission Date: 20141212
  Serious: No
  Sender: FDA-Public Use
  Company Number: US-PFIZER INC-2014135415

PATIENT
  Age: 66 Year
  Sex: Male
  Weight: 83.9 kg

DRUGS (2)
  1. LYRICA [Suspect]
     Indication: PERIPHERAL NERVE INJURY
     Dosage: 300 MG, 2X/DAY
     Dates: start: 2008
  2. FISH OIL OMEGA 3 [Concomitant]
     Dosage: 1000 MG, DAILY

REACTIONS (2)
  - Therapeutic response changed [Unknown]
  - Migraine [Unknown]
